FAERS Safety Report 9656523 (Version 2)
Quarter: 2013Q4

REPORT INFORMATION
  Report Type: Spontaneous
  Country: NL (occurrence: None)
  Receive Date: 20131028
  Receipt Date: 20131101
  Transmission Date: 20140711
  Serious: Yes (Other)
  Sender: FDA-Public Use
  Company Number: AUR-APL-2013-08766

PATIENT
  Age: 73 Year
  Sex: Female

DRUGS (3)
  1. PANTOPRAZOLE (PANTOPRAZOLE) [Suspect]
     Indication: PRODUCT USED FOR UNKNOWN INDICATION
  2. CLOMIPRAMINE [Suspect]
     Indication: PRODUCT USED FOR UNKNOWN INDICATION
  3. ETORICOXIB [Suspect]
     Indication: PRODUCT USED FOR UNKNOWN INDICATION

REACTIONS (1)
  - Inappropriate antidiuretic hormone secretion [None]
